FAERS Safety Report 6226287-0 (Version None)
Quarter: 2009Q2

REPORT INFORMATION
  Report Type: 
  Country: None (occurrence: None)
  Receive Date: 20090612
  Receipt Date: 20090512
  Transmission Date: 20091009
  Serious: No
  Sender: FDA-Public Use
  Company Number: US-ABBOTT-09P-163-0573139-00

PATIENT
  Sex: Male
  Weight: 89.892 kg

DRUGS (5)
  1. HUMIRA [Suspect]
     Indication: CROHN'S DISEASE
     Route: 058
     Dates: start: 20080401, end: 20081101
  2. HUMIRA [Suspect]
     Route: 058
     Dates: start: 20081101
  3. ACIPHEX [Concomitant]
     Indication: GASTROOESOPHAGEAL REFLUX DISEASE
     Route: 048
  4. VITAMIN B-12 [Concomitant]
     Indication: MALABSORPTION
     Route: 058
  5. VITAMIN B-12 [Concomitant]
     Indication: CROHN'S DISEASE

REACTIONS (1)
  - DRUG INEFFECTIVE [None]
